FAERS Safety Report 9654473 (Version 1)
Quarter: 2013Q4

REPORT INFORMATION
  Report Type: Spontaneous
  Country: US (occurrence: US)
  Receive Date: 20131029
  Receipt Date: 20131029
  Transmission Date: 20140711
  Serious: No
  Sender: FDA-Public Use
  Company Number: US-BIOGENIDEC-2013BI084535

PATIENT
  Age: 63 Year
  Sex: Female

DRUGS (4)
  1. TECFIDERA [Suspect]
     Indication: MULTIPLE SCLEROSIS
     Route: 048
     Dates: start: 20130726, end: 20130801
  2. TECFIDERA [Suspect]
     Indication: MULTIPLE SCLEROSIS
     Route: 048
     Dates: start: 20130802, end: 20130810
  3. NEURONTIN [Concomitant]
     Indication: DIABETIC NEUROPATHY
  4. ARICEPT [Concomitant]

REACTIONS (5)
  - Rash [Recovered/Resolved]
  - Local swelling [Unknown]
  - Formication [Unknown]
  - Dysuria [Unknown]
  - Abdominal discomfort [Unknown]
